FAERS Safety Report 5273371-4 (Version None)
Quarter: 2007Q1

REPORT INFORMATION
  Report Type: 
  Country: None (occurrence: None)
  Receive Date: 20070320
  Receipt Date: 20070307
  Transmission Date: 20070707
  Serious: Yes (Death)
  Sender: FDA-Public Use
  Company Number: 153757USA

PATIENT
  Age: 30 Year
  Sex: Male

DRUGS (2)
  1. HYDROCHLOROTHIAZIDE TABLETS, 25 MG (HYDROCHLOROTHIAZIDE) [Suspect]
     Indication: HYPERTENSION
     Dosage: 50 MG (50 MG, 1 IN 1 D), ORAL
     Route: 048
  2. OLANZAPINE [Suspect]
     Indication: SCHIZOPHRENIA, PARANOID TYPE
     Dosage: 15-20 MG PER DAY, ORAL
     Route: 048

REACTIONS (7)
  - ANAEMIA MACROCYTIC [None]
  - MYELODYSPLASTIC SYNDROME [None]
  - MYELOID LEUKAEMIA [None]
  - NO THERAPEUTIC RESPONSE [None]
  - PANCYTOPENIA [None]
  - PNEUMONIA [None]
  - STREPTOCOCCAL SEPSIS [None]
